FAERS Safety Report 6766141-9 (Version None)
Quarter: 2010Q2

REPORT INFORMATION
  Report Type: 
  Country: None (occurrence: None)
  Receive Date: 20100611
  Receipt Date: 20100602
  Transmission Date: 20101027
  Serious: Yes (Hospitalization)
  Sender: FDA-Public Use
  Company Number: CA-PFIZER INC-2010070238

PATIENT
  Age: 87 Year
  Sex: Male
  Weight: 61 kg

DRUGS (9)
  1. LIPITOR [Suspect]
     Dosage: 20 MG, 1X/DAY
     Route: 048
  2. ALDACTONE [Concomitant]
     Dosage: UNK
  3. ALTACE [Concomitant]
     Dosage: UNK
     Route: 048
  4. COLACE [Concomitant]
     Dosage: UNK
     Route: 048
  5. LASIX [Concomitant]
     Dosage: UNK
     Route: 048
  6. LOSEC I.V. [Concomitant]
     Dosage: UNK
     Route: 048
  7. NITRO-DUR [Concomitant]
     Dosage: UNK
     Route: 062
  8. PLAVIX [Concomitant]
     Dosage: UNK
     Route: 048
  9. SYNTHROID [Concomitant]
     Dosage: UNK
     Route: 048

REACTIONS (7)
  - ALANINE AMINOTRANSFERASE INCREASED [None]
  - ASPARTATE AMINOTRANSFERASE INCREASED [None]
  - BLOOD CREATINE PHOSPHOKINASE INCREASED [None]
  - BLOOD THYROID STIMULATING HORMONE DECREASED [None]
  - CHOKING [None]
  - MUSCULAR WEAKNESS [None]
  - POLYMYOSITIS [None]
